FAERS Safety Report 8959568 (Version 1)
Quarter: 2012Q4

REPORT INFORMATION
  Report Type: 
  Country: US (occurrence: US)
  Receive Date: 20121212
  Receipt Date: 20121212
  Transmission Date: 20130627
  Serious: Yes (Hospitalization)
  Sender: FDA-Public Use
  Company Number: US-PERRIGO-12US010414

PATIENT
  Sex: Male
  Weight: 72.56 kg

DRUGS (4)
  1. TOPCARE ANTACID MAXIMUM STRENGTH [Suspect]
     Indication: DYSPEPSIA
     Dosage: 2 to 4 tsp, single
     Route: 048
     Dates: start: 201211, end: 201211
  2. TOPCARE ANTACID MAXIMUM STRENGTH [Suspect]
     Dosage: 1 to 2 tsp, UNK
     Route: 048
     Dates: start: 201211, end: 201211
  3. KLONOPIN [Concomitant]
     Indication: PANIC ATTACK
     Dosage: UNK
     Route: 048
  4. PRILOSEC [Concomitant]
     Indication: DYSPEPSIA
     Dosage: UNK, prn
     Route: 048
     Dates: start: 201211

REACTIONS (3)
  - Vomiting [Recovered/Resolved]
  - Dehydration [Recovered/Resolved]
  - Underdose [Recovered/Resolved]
